FAERS Safety Report 7237138 (Version 5)
Quarter: 2013Q4

REPORT INFORMATION
  Report Type: Spontaneous
  Country: US (occurrence: US)
  Receive Date: 20100105
  Receipt Date: 20131126
  Transmission Date: 20140711
  Serious: Yes (Hospitalization, Other)
  Sender: FDA-Public Use
  Company Number: US-BAYER-201010038NA

PATIENT
  Age: 38 Year
  Sex: Female
  Weight: 79.37 kg

DRUGS (4)
  1. YAZ [Suspect]
     Indication: PRODUCT USED FOR UNKNOWN INDICATION
     Dosage: UNK
     Route: 048
     Dates: start: 200611, end: 2008
  2. YASMIN [Suspect]
     Indication: PRODUCT USED FOR UNKNOWN INDICATION
     Route: 048
  3. HYDROCODONE W/APAP [Concomitant]
     Dosage: 5/500 MG, UNK
  4. VICODIN [Concomitant]
     Dosage: UNK, PRN

REACTIONS (3)
  - Cholecystectomy [Unknown]
  - Biliary dyskinesia [None]
  - Cholecystitis [None]
